FAERS Safety Report 5782510-8 (Version None)
Quarter: 2008Q2

REPORT INFORMATION
  Report Type: 
  Country: None (occurrence: None)
  Receive Date: 20080623
  Receipt Date: 20080429
  Transmission Date: 20081010
  Serious: No
  Sender: FDA-Public Use
  Company Number: US-AMGEN-KDL276826

PATIENT
  Sex: Male

DRUGS (13)
  1. ARANESP [Suspect]
     Indication: DRUG USE FOR UNKNOWN INDICATION
     Dates: start: 20000101
  2. ASPIRIN [Concomitant]
     Dates: end: 20080101
  3. LISINOPRIL [Concomitant]
     Dates: end: 20080101
  4. METOPROLOL [Concomitant]
  5. GLIPIZIDE [Concomitant]
  6. LEVOTHYROXINE SODIUM [Concomitant]
  7. TRICOR [Concomitant]
  8. FOLIC ACID [Concomitant]
  9. IRON [Concomitant]
  10. VITAMINS [Concomitant]
  11. CALCIUM [Concomitant]
  12. TYLENOL [Concomitant]
  13. UNSPECIFIED MEDICATION [Concomitant]

REACTIONS (8)
  - ASTHENIA [None]
  - BLOOD GLUCOSE INCREASED [None]
  - DECREASED ACTIVITY [None]
  - HAEMOGLOBIN DECREASED [None]
  - INSOMNIA [None]
  - MALAISE [None]
  - RENAL FAILURE [None]
  - SKIN HAEMORRHAGE [None]
